FAERS Safety Report 25062328 (Version 1)
Quarter: 2025Q1

REPORT INFORMATION
  Report Type: Spontaneous
  Country: US (occurrence: None)
  Receive Date: 20250310
  Receipt Date: 20250310
  Transmission Date: 20250409
  Serious: Yes (Hospitalization)
  Sender: FDA-CTU
  Company Number: None

PATIENT
  Age: 83 Year
  Sex: Male
  Weight: 77.3 kg

DRUGS (2)
  1. TACROLIMUS [Suspect]
     Active Substance: TACROLIMUS
     Indication: Renal transplant
     Dates: start: 20230922
  2. TACROLIMUS [Suspect]
     Active Substance: TACROLIMUS
     Indication: Renal transplant
     Dosage: 1 MG DAILY ORAL ?
     Route: 048
     Dates: start: 20230922

REACTIONS (2)
  - Dialysis [None]
  - Renal failure [None]

NARRATIVE: CASE EVENT DATE: 20250212
